FAERS Safety Report 9444922 (Version 1)
Quarter: 2013Q3

REPORT INFORMATION
  Report Type: Spontaneous
  Country: US (occurrence: None)
  Receive Date: 20130802
  Receipt Date: 20130802
  Transmission Date: 20140515
  Serious: Yes (Death, Hospitalization, Other)
  Sender: FDA-Public Use
  Company Number: ADR-2013-01284

PATIENT
  Age: 49 Year
  Sex: Female
  Weight: 77 kg

DRUGS (1)
  1. BACLOFEN [Suspect]
     Indication: MUSCLE SPASTICITY
     Dates: end: 20130629

REACTIONS (29)
  - Asthenia [None]
  - Dyspnoea [None]
  - Pallor [None]
  - Pyrexia [None]
  - Cough [None]
  - Nausea [None]
  - Activities of daily living impaired [None]
  - Acute respiratory failure [None]
  - Altered state of consciousness [None]
  - Mental status changes [None]
  - Sedation [None]
  - Subarachnoid haemorrhage [None]
  - Meningitis [None]
  - Intracranial aneurysm [None]
  - Cerebral arteriosclerosis [None]
  - Septic shock [None]
  - Hypoxia [None]
  - Acute respiratory distress syndrome [None]
  - Urinary tract infection enterococcal [None]
  - Delirium [None]
  - Ischaemic stroke [None]
  - Embolic stroke [None]
  - Aortic thrombosis [None]
  - Hypotension [None]
  - Respiratory acidosis [None]
  - Hypovolaemic shock [None]
  - Hypoxic-ischaemic encephalopathy [None]
  - Pneumonia [None]
  - Respiratory failure [None]
